FAERS Safety Report 9491119 (Version 3)
Quarter: 2013Q4

REPORT INFORMATION
  Report Type: Spontaneous
  Country: US (occurrence: US)
  Receive Date: 20130830
  Receipt Date: 20131007
  Transmission Date: 20140711
  Serious: Yes (Death, Hospitalization)
  Sender: FDA-Public Use
  Company Number: US-B.I. PHARMACEUTICALS,INC./RIDGEFIELD-2013-BI-26786BP

PATIENT
  Age: 63 Year
  Sex: Male
  Weight: 139.3 kg

DRUGS (14)
  1. PRADAXA [Suspect]
     Indication: ATRIAL FIBRILLATION
     Dosage: 300 MG
     Route: 048
     Dates: start: 201204, end: 20130820
  2. ALLOPURINOL [Concomitant]
     Dosage: 162 MG
  3. ASPIRIN [Concomitant]
     Dosage: 162 MG
  4. LIPITOR [Concomitant]
     Dosage: 20 MG
  5. COREG [Concomitant]
     Dosage: 50 MG
  6. LASIX [Concomitant]
     Dosage: 80 MG
  7. HUMALOG [Concomitant]
     Dosage: 100 U
  8. LEVOTHYROXINE [Concomitant]
     Dosage: 25 MCG
  9. NYSTATIN [Concomitant]
     Dosage: 1000 MG
  10. PROTONIX [Concomitant]
     Dosage: 40 MG
  11. ACCUPRO [Concomitant]
     Dosage: 40 MG
  12. SOTALOL [Concomitant]
     Dosage: 160 MG
  13. ALDACTONE [Concomitant]
     Dosage: 25 MG
  14. MULTIVITAMIN [Concomitant]
     Dosage: 1 ANZ

REACTIONS (5)
  - Death [Fatal]
  - Cerebrovascular accident [Recovered/Resolved with Sequelae]
  - Cerebral thrombosis [Unknown]
  - Ankle fracture [Unknown]
  - Fall [Unknown]
